FAERS Safety Report 9908050 (Version 2)
Quarter: 2014Q1

REPORT INFORMATION
  Report Type: Spontaneous
  Country: BR (occurrence: BR)
  Receive Date: 20140219
  Receipt Date: 20140219
  Transmission Date: 20141002
  Serious: Yes (Hospitalization)
  Sender: FDA-Public Use
  Company Number: BR-ASTRAZENECA-2012SE76574

PATIENT
  Age: 70 Year
  Sex: Female

DRUGS (6)
  1. SEROQUEL XRO [Suspect]
     Indication: DEMENTIA ALZHEIMER^S TYPE
     Route: 048
     Dates: start: 201207, end: 20120919
  2. SEROQUEL XRO [Suspect]
     Indication: RESTLESSNESS
     Route: 048
     Dates: start: 201207, end: 20120919
  3. SEROQUEL XRO [Suspect]
     Indication: DEMENTIA ALZHEIMER^S TYPE
     Route: 048
     Dates: start: 20120920
  4. SEROQUEL XRO [Suspect]
     Indication: RESTLESSNESS
     Route: 048
     Dates: start: 20120920
  5. SEROQUEL XRO [Suspect]
     Indication: DEMENTIA ALZHEIMER^S TYPE
     Route: 048
     Dates: start: 2012
  6. SEROQUEL XRO [Suspect]
     Indication: RESTLESSNESS
     Route: 048
     Dates: start: 2012

REACTIONS (4)
  - Pneumonia [Recovered/Resolved]
  - Thrombosis [Recovered/Resolved]
  - Treatment failure [Unknown]
  - Off label use [Not Recovered/Not Resolved]
